FAERS Safety Report 20948017 (Version 1)
Quarter: 2022Q2

REPORT INFORMATION
  Report Type: Spontaneous
  Country: US (occurrence: US)
  Receive Date: 20220611
  Receipt Date: 20220611
  Transmission Date: 20220721
  Serious: Yes (Death, Hospitalization, Other)
  Sender: FDA-Public Use
  Company Number: US-SA-2022SA216076

PATIENT
  Age: 62 Year
  Sex: Female

DRUGS (1)
  1. DUPILUMAB [Suspect]
     Active Substance: DUPILUMAB
     Indication: Dermatitis atopic
     Dosage: UNK

REACTIONS (9)
  - Cutaneous T-cell lymphoma [Fatal]
  - Ulcer [Fatal]
  - Rash [Fatal]
  - Skin erosion [Fatal]
  - Lichenoid keratosis [Fatal]
  - Dermatitis [Fatal]
  - Condition aggravated [Fatal]
  - Septic shock [Fatal]
  - Herpes simplex [Fatal]
